FAERS Safety Report 24391465 (Version 1)
Quarter: 2024Q4

REPORT INFORMATION
  Report Type: Other
  Country: FR (occurrence: FR)
  Receive Date: 20241003
  Receipt Date: 20241003
  Transmission Date: 20250115
  Serious: Yes (Hospitalization)
  Sender: STRIDES
  Company Number: None

PATIENT
  Age: 70 Year
  Sex: Male
  Weight: 75.5 kg

DRUGS (1)
  1. IBUPROFEN [Suspect]
     Active Substance: IBUPROFEN
     Indication: Analgesic intervention supportive therapy
     Dosage: SELF-MEDICATION, TABLET
     Route: 048
     Dates: start: 20240525, end: 20240529

REACTIONS (2)
  - Staphylococcal bacteraemia [Recovering/Resolving]
  - Infection masked [Recovering/Resolving]

NARRATIVE: CASE EVENT DATE: 20240525
